FAERS Safety Report 5990705-3 (Version None)
Quarter: 2008Q4

REPORT INFORMATION
  Report Type: 
  Country: None (occurrence: None)
  Receive Date: 20081211
  Receipt Date: 20081202
  Transmission Date: 20090506
  Serious: Yes (Other)
  Sender: FDA-Public Use
  Company Number: PHHY2008GB29283

PATIENT
  Sex: Female

DRUGS (1)
  1. VITALEYES BRIGHTENER (NVO) [Suspect]
     Indication: EYE DISORDER

REACTIONS (5)
  - EYE DISORDER [None]
  - EYE PAIN [None]
  - EYE SWELLING [None]
  - LACRIMATION INCREASED [None]
  - OCULAR HYPERAEMIA [None]
